FAERS Safety Report 17817885 (Version 1)
Quarter: 2020Q2

REPORT INFORMATION
  Report Type: Report from Study
  Country: US (occurrence: US)
  Receive Date: 20200522
  Receipt Date: 20200522
  Transmission Date: 20200714
  Serious: Yes (Hospitalization)
  Sender: FDA-Public Use
  Company Number: US-TAKEDA-2019TUS047329

PATIENT
  Sex: Male

DRUGS (2)
  1. BORTEZOMIB. [Suspect]
     Active Substance: BORTEZOMIB
     Indication: AMYLOIDOSIS
     Dosage: 2.5 MILLIGRAM, MONTHLY
     Route: 065
     Dates: start: 20190611
  2. BORTEZOMIB. [Suspect]
     Active Substance: BORTEZOMIB
     Indication: MALIGNANT LYMPHOID NEOPLASM
     Dosage: UNK
     Route: 058

REACTIONS (2)
  - Off label use [Unknown]
  - Cardiac disorder [Recovering/Resolving]
